FAERS Safety Report 6123050-6 (Version None)
Quarter: 2009Q1

REPORT INFORMATION
  Report Type: 
  Country: None (occurrence: None)
  Receive Date: 20090318
  Receipt Date: 20090304
  Transmission Date: 20090719
  Serious: Yes (Death, Other)
  Sender: FDA-Public Use
  Company Number: JP-PFIZER INC-2009165142

PATIENT

DRUGS (4)
  1. VFEND [Suspect]
     Dosage: UNK
     Route: 042
     Dates: start: 20081227
  2. MICAFUNGIN SODIUM [Concomitant]
  3. ACECOL [Concomitant]
  4. LASIX [Concomitant]

REACTIONS (3)
  - DIARRHOEA [None]
  - HYPOKALAEMIA [None]
  - INFECTION [None]
